FAERS Safety Report 10214049 (Version 6)
Quarter: 2014Q4

REPORT INFORMATION
  Report Type: Spontaneous
  Country: US (occurrence: US)
  Receive Date: 20140603
  Receipt Date: 20141204
  Transmission Date: 20150528
  Serious: Yes (Hospitalization)
  Sender: FDA-Public Use
  Company Number: US-PFIZER INC-2014148695

PATIENT
  Age: 67 Year
  Sex: Female
  Weight: 59 kg

DRUGS (17)
  1. ADVIL [Suspect]
     Active Substance: IBUPROFEN
     Indication: PAIN
     Dosage: DOSAGE FORM: TABLET, ONCE EVERY 4 HOURS AS NEEDED 1 TO 3
     Route: 048
     Dates: start: 20131104, end: 20131115
  2. MOTRIN [Suspect]
     Active Substance: IBUPROFEN
     Indication: PAIN
     Dosage: ONCE EVERY 4 HOURS AS NEEDED 1 TO 3 DOSES A DAY
     Route: 048
     Dates: start: 20131104, end: 20131115
  3. ATIVAN [Concomitant]
     Active Substance: LORAZEPAM
     Dosage: 0.5 MG 3X/DAY
     Route: 048
  4. ZYPREXA [Concomitant]
     Active Substance: OLANZAPINE
     Dosage: 2.5 MG, 2X/DAY
     Route: 048
  5. CELEXA [Concomitant]
     Active Substance: CITALOPRAM HYDROBROMIDE
     Dosage: DOSAGE FORM: UNSPECIFIED
     Route: 048
     Dates: start: 20131105, end: 20131112
  6. PROTONIX [Concomitant]
     Active Substance: PANTOPRAZOLE SODIUM
     Dosage: DOSAGE FORM: UNSPECIFIED
     Route: 048
  7. PROPRANOLOL [Concomitant]
     Active Substance: PROPRANOLOL\PROPRANOLOL HYDROCHLORIDE
     Dosage: DOSAGE FORM: UNSPECIFIED
     Route: 065
  8. DEPAKOTE [Concomitant]
     Active Substance: DIVALPROEX SODIUM
     Indication: BIPOLAR DISORDER
     Dosage: DOSAGE FORM: UNSPECIFIED, 500 MG, 750 MG
     Route: 048
     Dates: start: 20131105, end: 20131114
  9. CELEXA [Concomitant]
     Active Substance: CITALOPRAM HYDROBROMIDE
     Dosage: DOSAGE FORM: UNSPECIFIED
     Route: 048
  10. XARELTO [Suspect]
     Active Substance: RIVAROXABAN
     Indication: DEEP VEIN THROMBOSIS
  11. INDERAL [Concomitant]
     Active Substance: PROPRANOLOL HYDROCHLORIDE
     Dosage: DOSAGE FORM: UNSPECIFIED
     Route: 048
  12. CIPROFLOXACIN. [Concomitant]
     Active Substance: CIPROFLOXACIN
     Indication: URINARY TRACT INFECTION
     Dosage: DOSAGE FORM: UNSPECIFIED
     Route: 048
     Dates: start: 20131104, end: 20131111
  13. LOMOTIL [Concomitant]
     Active Substance: ATROPINE SULFATE\DIPHENOXYLATE HYDROCHLORIDE
     Indication: DIARRHOEA
     Route: 065
     Dates: start: 20131108, end: 20131110
  14. XARELTO [Suspect]
     Active Substance: RIVAROXABAN
     Indication: PULMONARY EMBOLISM
     Dosage: 15 MG, 2X/DAY
     Route: 048
     Dates: start: 20131101, end: 20131115
  15. THERAGRAN [Concomitant]
     Active Substance: VITAMINS
     Dosage: DOSAGE FORM: TABLET
     Route: 048
  16. DEPAKOTE [Concomitant]
     Active Substance: DIVALPROEX SODIUM
     Dosage: DOSAGE FORM: UNSPECIFIED
     Route: 048
  17. SYNTHROID [Concomitant]
     Active Substance: LEVOTHYROXINE SODIUM
     Indication: HYPOTHYROIDISM
     Dosage: DOSAGE FORM: UNSPECIFIED
     Route: 065
     Dates: start: 20131105, end: 20131114

REACTIONS (2)
  - Pneumonia [Unknown]
  - Rectal ulcer haemorrhage [Unknown]

NARRATIVE: CASE EVENT DATE: 20131116
